FAERS Safety Report 5814624-8 (Version None)
Quarter: 2008Q3

REPORT INFORMATION
  Report Type: 
  Country: None (occurrence: None)
  Receive Date: 20080718
  Receipt Date: 20071217
  Transmission Date: 20090109
  Serious: No
  Sender: FDA-Public Use
  Company Number: US-KINGPHARMUSA00001-K200701623

PATIENT

DRUGS (12)
  1. LEVOXYL [Suspect]
     Indication: HYPOTHYROIDISM
     Dosage: 25 MCG, QD
     Route: 048
     Dates: start: 20070401, end: 20071101
  2. LEVOXYL [Suspect]
     Dosage: 50 MCG, QD
     Route: 048
     Dates: start: 20071101
  3. ASPIRIN [Concomitant]
  4. MULTIVITAMIN /00831701/ [Concomitant]
  5. B-COMPLEX /01523901/ [Concomitant]
  6. MAGNESIUM OXIDE [Concomitant]
  7. L-ARGININE [Concomitant]
     Indication: CARDIAC DISORDER
  8. VERAPAMIL [Concomitant]
     Indication: CARDIAC DISORDER
  9. LANTUS [Concomitant]
     Indication: DIABETES MELLITUS
     Dosage: 95 U, QHS
  10. HUMALOG [Concomitant]
     Indication: DIABETES MELLITUS
     Dosage: PER SLIDING SCALE, TID
  11. BENICAR [Concomitant]
     Indication: HYPERTENSION
  12. CRESTOR [Concomitant]
     Indication: HYPERCHOLESTEROLAEMIA

REACTIONS (3)
  - BLOOD GLUCOSE INCREASED [None]
  - FATIGUE [None]
  - THYROID FUNCTION TEST ABNORMAL [None]
